FAERS Safety Report 6097773-1 (Version None)
Quarter: 2009Q1

REPORT INFORMATION
  Report Type: 
  Country: None (occurrence: None)
  Receive Date: 20090227
  Receipt Date: 20090216
  Transmission Date: 20090719
  Serious: Yes (Other)
  Sender: FDA-Public Use
  Company Number: MX-GENENTECH-277915

PATIENT
  Sex: Female

DRUGS (5)
  1. AVASTIN [Suspect]
     Indication: BREAST CANCER METASTATIC
     Dosage: 800 MG, Q21D
     Route: 042
     Dates: start: 20070801
  2. AVASTIN [Suspect]
     Dosage: 600 MG, Q21D
     Dates: start: 20090126
  3. CYCLOPHOSPHAMIDE [Concomitant]
     Indication: DRUG USE FOR UNKNOWN INDICATION
     Dosage: UNK
     Dates: start: 20090126
  4. CAPECITABINE [Concomitant]
     Indication: DRUG USE FOR UNKNOWN INDICATION
     Dosage: UNK
     Dates: start: 20090126
  5. IRINOTECAN HCL [Concomitant]
     Indication: DRUG USE FOR UNKNOWN INDICATION
     Dosage: UNK
     Dates: start: 20070801

REACTIONS (3)
  - ANAEMIA [None]
  - EPISTAXIS [None]
  - THROMBOCYTOPENIA [None]
